FAERS Safety Report 8960452 (Version 1)
Quarter: 2012Q4

REPORT INFORMATION
  Report Type: Spontaneous
  Country: US (occurrence: None)
  Receive Date: 20121211
  Receipt Date: 20121211
  Transmission Date: 20130627
  Serious: Yes (Hospitalization)
  Sender: FDA-Public Use
  Company Number: None

PATIENT
  Sex: Male
  Weight: 78.02 kg

DRUGS (1)
  1. WARFARIN [Suspect]
     Indication: DVT
     Dosage: warfarin QD PO (See INR Levels/Doses)
     Route: 048
     Dates: start: 20120913

REACTIONS (3)
  - International normalised ratio decreased [None]
  - Deep vein thrombosis [None]
  - Disease recurrence [None]
